FAERS Safety Report 6647619-5 (Version None)
Quarter: 2010Q1

REPORT INFORMATION
  Report Type: 
  Country: None (occurrence: None)
  Receive Date: 20100323
  Receipt Date: 20100323
  Transmission Date: 20100710
  Serious: Yes (Hospitalization)
  Sender: FDA-Public Use
  Company Number: None

PATIENT
  Age: 67 Year
  Sex: Female

DRUGS (2)
  1. LEVOFLOXACIN [Suspect]
     Indication: BACTERAEMIA
     Dosage: 750MG DAILY PO
     Route: 048
     Dates: start: 20100311, end: 20100317
  2. LEVOFLOXACIN [Suspect]
     Indication: URINARY TRACT INFECTION
     Dosage: 750MG DAILY PO
     Route: 048
     Dates: start: 20100311, end: 20100317

REACTIONS (1)
  - TENDON RUPTURE [None]
